FAERS Safety Report 19690890 (Version 1)
Quarter: 2021Q3

REPORT INFORMATION
  Report Type: Other
  Country: DE (occurrence: DE)
  Receive Date: 20210812
  Receipt Date: 20210812
  Transmission Date: 20211014
  Serious: Yes (Hospitalization)
  Sender: FDA-Public Use
  Company Number: DE-ROCHE-2881968

PATIENT
  Age: 82 Year
  Sex: Male
  Weight: 72 kg

DRUGS (13)
  1. PANTOPRAZOL [Concomitant]
     Active Substance: PANTOPRAZOLE SODIUM
     Route: 048
     Dates: end: 2021
  2. RIVAROXABAN [Concomitant]
     Active Substance: RIVAROXABAN
     Route: 048
     Dates: end: 2021
  3. BEVACIZUMAB. [Suspect]
     Active Substance: BEVACIZUMAB
     Indication: HEPATOCELLULAR CARCINOMA
     Dosage: ON 22/DEC/2020, PATIENT RECEIVED LAST DOSE PRIOR TO EVENT.?ON 12/JAN/2021, PATIENT RECEIVED LAST DOS
     Route: 065
     Dates: start: 20201222, end: 20210316
  4. TORASEMID [Concomitant]
     Active Substance: TORSEMIDE
     Route: 048
     Dates: end: 2021
  5. FLECAINIDE [Concomitant]
     Active Substance: FLECAINIDE
     Route: 048
     Dates: end: 2021
  6. VERAPAMIL [Concomitant]
     Active Substance: VERAPAMIL HYDROCHLORIDE
     Route: 048
     Dates: end: 2021
  7. LACTULOSE. [Concomitant]
     Active Substance: LACTULOSE
     Route: 048
     Dates: end: 2021
  8. LEVETIRACETAM. [Concomitant]
     Active Substance: LEVETIRACETAM
     Route: 048
     Dates: end: 2021
  9. TROMCARDIN [Concomitant]
     Active Substance: MAGNESIUM ASPARTATE\POTASSIUM ASPARTATE
     Route: 048
     Dates: end: 2021
  10. ATEZOLIZUMAB. [Suspect]
     Active Substance: ATEZOLIZUMAB
     Indication: HEPATOCELLULAR CARCINOMA
     Dosage: ON 22/DEC/2020, PATIENT RECEIVED LAST DOSE PRIOR TO EVENT.?ON 12/JAN/2021, PATIENT RECEIVED LAST DOS
     Route: 065
     Dates: start: 20201222, end: 20210316
  11. METOCLOPRAMID [Concomitant]
     Active Substance: METOCLOPRAMIDE
     Route: 048
     Dates: end: 2021
  12. METAMIZOL [Concomitant]
     Active Substance: METAMIZOLE SODIUM
     Route: 048
     Dates: end: 2021
  13. PREGABALIN. [Concomitant]
     Active Substance: PREGABALIN
     Route: 048
     Dates: end: 2021

REACTIONS (2)
  - Seizure [Recovered/Resolved]
  - General physical health deterioration [Recovered/Resolved]

NARRATIVE: CASE EVENT DATE: 20210106
